FAERS Safety Report 16979760 (Version 1)
Quarter: 2019Q4

REPORT INFORMATION
  Report Type: Spontaneous
  Country: JP (occurrence: JP)
  Receive Date: 20191031
  Receipt Date: 20191031
  Transmission Date: 20200122
  Serious: Yes (Other)
  Sender: FDA-Public Use
  Company Number: JP-GLAXOSMITHKLINE-JP2019JPN193804

PATIENT
  Sex: Female

DRUGS (1)
  1. ALLERMIST [Suspect]
     Active Substance: FLUTICASONE FUROATE
     Route: 045

REACTIONS (6)
  - Nasal congestion [Unknown]
  - Product storage error [Unknown]
  - Wrong technique in product usage process [Unknown]
  - Empyema [Unknown]
  - Rhinorrhoea [Unknown]
  - Nasal disorder [Unknown]
